FAERS Safety Report 8090748-2 (Version None)
Quarter: 2012Q1

REPORT INFORMATION
  Report Type: 
  Country: None (occurrence: None)
  Receive Date: 20120125
  Receipt Date: 20120111
  Transmission Date: 20120608
  Serious: Yes (Hospitalization)
  Sender: FDA-Public Use
  Company Number: JP-20110039

PATIENT
  Age: 78 Year
  Sex: Male

DRUGS (4)
  1. (LIPIODOL ULTRA FLUIDE) (ETHIODIZED OIL) [Suspect]
     Indication: REGIONAL CHEMOTHERAPY
     Dosage: 3 ML (3 ML, 1 IN 1 D), INTRA-ARTERIAL
     Route: 013
     Dates: start: 20060601, end: 20060601
  2. (ANNHYDROUS ETHANOL) (ANNHYDROUS ETHANOL) [Suspect]
     Indication: PERCUTANEOUS ETHANOL INJECTION THERAPY
     Dosage: 13 ML (13 ML, 1 IN 1 D), TRANSDERMAL
     Route: 062
     Dates: start: 20060601, end: 20060601
  3. MITOMYCIN [Suspect]
     Indication: REGIONAL CHEMOTHERAPY
     Dosage: 6 MG (6 MG, 1 IN 1 D), INTRA-ARTERIAL
     Route: 013
     Dates: start: 20060601, end: 20060601
  4. EPIRUBICIN HYDROCHLORIDE [Suspect]
     Indication: REGIONAL CHEMOTHERAPY
     Dosage: 30 MG (30 MG, 1 IN 1 D), INTRA-ARTERIAL
     Route: 013
     Dates: start: 20060601, end: 20060601

REACTIONS (4)
  - OFF LABEL USE [None]
  - HEPATIC NEOPLASM MALIGNANT RECURRENT [None]
  - GENERAL PHYSICAL HEALTH DETERIORATION [None]
  - TUMOUR EMBOLISM [None]
